FAERS Safety Report 17550311 (Version 1)
Quarter: 2020Q1

REPORT INFORMATION
  Report Type: Spontaneous
  Country: SE (occurrence: SE)
  Receive Date: 20200317
  Receipt Date: 20200317
  Transmission Date: 20200409
  Serious: Yes (Other)
  Sender: FDA-Public Use
  Company Number: SE-009507513-2003SWE003182

PATIENT
  Sex: Male

DRUGS (1)
  1. EZETROL [Suspect]
     Active Substance: EZETIMIBE
     Dosage: UNK
     Dates: end: 20200104

REACTIONS (3)
  - Pharyngeal swelling [Unknown]
  - Peripheral swelling [Unknown]
  - Paraesthesia [Unknown]
